FAERS Safety Report 6839425-3 (Version None)
Quarter: 2010Q2

REPORT INFORMATION
  Report Type: 
  Country: None (occurrence: None)
  Receive Date: 20100629
  Receipt Date: 20100414
  Transmission Date: 20101027
  Serious: No
  Sender: FDA-Public Use
  Company Number: US-WYE-H14615210

PATIENT
  Age: 59 Year
  Sex: Female
  Weight: 77.18 kg

DRUGS (3)
  1. PRISTIQ [Suspect]
     Indication: DEPRESSION
     Dosage: 50 MG, 1X PER 2 DAY, ORAL ; 50 MG 1X PER 1 DAY, ORAL
     Route: 048
     Dates: start: 20090101, end: 20100301
  2. PRISTIQ [Suspect]
     Indication: DEPRESSION
     Dosage: 50 MG, 1X PER 2 DAY, ORAL ; 50 MG 1X PER 1 DAY, ORAL
     Route: 048
     Dates: start: 20100301, end: 20100412
  3. LORAZEPAM [Concomitant]

REACTIONS (15)
  - ABNORMAL DREAMS [None]
  - ASTHENIA [None]
  - BALANCE DISORDER [None]
  - DRUG WITHDRAWAL SYNDROME [None]
  - EAR DISCOMFORT [None]
  - FATIGUE [None]
  - FEELING ABNORMAL [None]
  - GAIT DISTURBANCE [None]
  - HYPERHIDROSIS [None]
  - MALAISE [None]
  - NAUSEA [None]
  - PALPITATIONS [None]
  - PANIC REACTION [None]
  - SOMNOLENCE [None]
  - TINNITUS [None]
